FAERS Safety Report 23258551 (Version 1)
Quarter: 2023Q4

REPORT INFORMATION
  Report Type: Spontaneous
  Country: US (occurrence: None)
  Receive Date: 20231202
  Receipt Date: 20231202
  Transmission Date: 20240109
  Serious: Yes (Hospitalization)
  Sender: FDA-Public Use
  Company Number: None

PATIENT
  Age: 79 Year
  Sex: Male
  Weight: 106 kg

DRUGS (2)
  1. APIXABAN [Suspect]
     Active Substance: APIXABAN
     Dosage: 5 MG BID PO
     Route: 048
     Dates: start: 20230901
  2. ASPIRIN [Suspect]
     Active Substance: ASPIRIN
     Dosage: 81 MG EVERY DAY PO
     Route: 048
     Dates: start: 20230208

REACTIONS (1)
  - Anaemia [None]

NARRATIVE: CASE EVENT DATE: 20231005
